FAERS Safety Report 5168447-6 (Version None)
Quarter: 2006Q4

REPORT INFORMATION
  Report Type: 
  Country: None (occurrence: None)
  Receive Date: 20061208
  Receipt Date: 20061128
  Transmission Date: 20070319
  Serious: Yes (Other)
  Sender: FDA-Public Use
  Company Number: CA-ROCHE-472766

PATIENT
  Age: 74 Year
  Sex: Female

DRUGS (11)
  1. TAMIFLU [Suspect]
     Indication: DRUG USE FOR UNKNOWN INDICATION
     Dosage: DAILY.
     Route: 048
  2. DIAZEPAM [Concomitant]
  3. MULTIVITE [Concomitant]
  4. NITRO-DUR [Concomitant]
  5. LASIX [Concomitant]
  6. SLOW-K [Concomitant]
  7. VALPROIC ACID [Concomitant]
  8. TYLENOL W/ CODEINE NO. 2 [Concomitant]
  9. TYLENOL [Concomitant]
  10. VASOTEC [Concomitant]
  11. ASPIRIN [Concomitant]
     Dosage: FORM REPORTED AS 'CTB'.

REACTIONS (3)
  - BLOOD CREATININE INCREASED [None]
  - CONFUSIONAL STATE [None]
  - HAEMOGLOBIN DECREASED [None]
